FAERS Safety Report 13716596 (Version 1)
Quarter: 2017Q3

REPORT INFORMATION
  Report Type: Spontaneous
  Country: US (occurrence: US)
  Receive Date: 20170703
  Receipt Date: 20170703
  Transmission Date: 20171127
  Serious: Yes (Hospitalization)
  Sender: FDA-Public Use
  Company Number: None

PATIENT
  Age: 66 Year
  Sex: Female

DRUGS (9)
  1. VITAMIN C [Concomitant]
     Active Substance: ASCORBIC ACID
  2. BIOTIN [Concomitant]
     Active Substance: BIOTIN
  3. GLUCOSAMINE [Concomitant]
     Active Substance: GLUCOSAMINE
  4. AFINITOR [Suspect]
     Active Substance: EVEROLIMUS
     Route: 048
     Dates: start: 20170209
  5. CENTRIUM [Concomitant]
  6. AFINITOR [Concomitant]
     Active Substance: EVEROLIMUS
  7. LENVIMA [Concomitant]
     Active Substance: LENVATINIB
  8. CALCIUM [Concomitant]
     Active Substance: CALCIUM
  9. COQ10 [Concomitant]
     Active Substance: UBIDECARENONE

REACTIONS (1)
  - Dyspnoea [None]

NARRATIVE: CASE EVENT DATE: 201706
